FAERS Safety Report 4676444-X (Version None)
Quarter: 2005Q2

REPORT INFORMATION
  Report Type: 
  Country: None (occurrence: None)
  Receive Date: 20050527
  Receipt Date: 20050519
  Transmission Date: 20051028
  Serious: Yes (Other)
  Sender: FDA-Public Use
  Company Number: US-JNJFOC-20050506040

PATIENT
  Age: 79 Year
  Sex: Female

DRUGS (4)
  1. EXTRA STRENGTH TYLENOL [Suspect]
     Indication: HEADACHE
  2. EXTRA STRENGTH TYLENOL [Suspect]
     Dosage: 250 MG THREE TO FOUR TIMES DAILY, 5 TIMES DAILY AT MOST
  3. LORAZEPAM [Concomitant]
     Route: 049
  4. ZESTRIL [Concomitant]
     Route: 049

REACTIONS (3)
  - MENTAL IMPAIRMENT [None]
  - NAUSEA [None]
  - WRONG TECHNIQUE IN DRUG USAGE PROCESS [None]
